FAERS Safety Report 4580127-4 (Version None)
Quarter: 2005Q1

REPORT INFORMATION
  Report Type: 
  Country: None (occurrence: None)
  Receive Date: 20050210
  Receipt Date: 20050201
  Transmission Date: 20050727
  Serious: Yes (Hospitalization, Other)
  Sender: FDA-Public Use
  Company Number: 200510243GDS

PATIENT

DRUGS (2)
  1. CIPROFLOXACIN [Suspect]
  2. ACETAMINOPHEN [Suspect]

REACTIONS (1)
  - GASTRITIS EROSIVE [None]
